FAERS Safety Report 25490622 (Version 1)
Quarter: 2025Q2

REPORT INFORMATION
  Report Type: Spontaneous
  Country: IT (occurrence: IT)
  Receive Date: 20250627
  Receipt Date: 20250627
  Transmission Date: 20250716
  Serious: Yes (Other)
  Sender: APELLIS PHARMACEUTICALS
  Company Number: IT-BIOVITRUM-2025-IT-008944

PATIENT

DRUGS (1)
  1. PEGCETACOPLAN [Suspect]
     Active Substance: PEGCETACOPLAN
     Indication: Paroxysmal nocturnal haemoglobinuria

REACTIONS (4)
  - Pneumonia [Unknown]
  - Product prescribing error [Unknown]
  - Product use issue [Unknown]
  - Breakthrough haemolysis [Unknown]
